FAERS Safety Report 5709811-3 (Version None)
Quarter: 2008Q2

REPORT INFORMATION
  Report Type: 
  Country: None (occurrence: None)
  Receive Date: 20080418
  Receipt Date: 20080409
  Transmission Date: 20081010
  Serious: Yes (Hospitalization)
  Sender: FDA-Public Use
  Company Number: AR-AMGEN-US274012

PATIENT
  Sex: Female
  Weight: 68 kg

DRUGS (4)
  1. ENBREL [Suspect]
     Indication: RHEUMATOID ARTHRITIS
     Route: 058
     Dates: start: 20080118
  2. CYMBALTA [Concomitant]
     Route: 065
  3. COZAAR [Concomitant]
     Route: 065
  4. NAPROXEN [Concomitant]
     Route: 065

REACTIONS (1)
  - CONSTIPATION [None]
